FAERS Safety Report 20791026 (Version 1)
Quarter: 2022Q2

REPORT INFORMATION
  Report Type: Spontaneous
  Country: US (occurrence: US)
  Receive Date: 20220505
  Receipt Date: 20220505
  Transmission Date: 20220720
  Serious: No
  Sender: FDA-Public Use
  Company Number: US-GE HEALTHCARE-2022CSU001056

PATIENT
  Sex: Female

DRUGS (3)
  1. MYOVIEW [Suspect]
     Active Substance: TECHNETIUM TC-99M TETROFOSMIN
     Indication: Diagnostic procedure
     Dosage: 370 MBQ (10 MCI), SINGLE
     Route: 013
  2. MYOVIEW [Suspect]
     Active Substance: TECHNETIUM TC-99M TETROFOSMIN
     Indication: Product used for unknown indication
  3. TECHNETIUM TC-99M [Concomitant]
     Active Substance: TECHNETIUM TC-99M
     Indication: Product used for unknown indication
     Dosage: UNK, SINGLE

REACTIONS (2)
  - Off label use [Recovered/Resolved]
  - No adverse event [Recovered/Resolved]
